FAERS Safety Report 13194548 (Version 1)
Quarter: 2017Q1

REPORT INFORMATION
  Report Type: Spontaneous
  Country: US (occurrence: US)
  Receive Date: 20170207
  Receipt Date: 20170207
  Transmission Date: 20170428
  Serious: No
  Sender: FDA-Public Use
  Company Number: US-JAZZ-2016-US-002574

PATIENT
  Age: 63 Year
  Sex: Female

DRUGS (18)
  1. LOSARTAN. [Concomitant]
     Active Substance: LOSARTAN
  2. NITROGLYCERIN. [Concomitant]
     Active Substance: NITROGLYCERIN
  3. METOPROLOL. [Concomitant]
     Active Substance: METOPROLOL
  4. NORCO [Concomitant]
     Active Substance: ACETAMINOPHEN\HYDROCODONE BITARTRATE
  5. PRIALT [Suspect]
     Active Substance: ZICONOTIDE ACETATE
     Dosage: 0.249 ?G, UNK
     Route: 037
  6. MELATONIN [Concomitant]
     Active Substance: MELATONIN
  7. CLOBETASOL [Concomitant]
     Active Substance: CLOBETASOL
  8. PRIALT [Suspect]
     Active Substance: ZICONOTIDE ACETATE
     Indication: SPINAL PAIN
     Dosage: 0.066 ?G, QH
     Route: 037
     Dates: start: 20151228, end: 20160119
  9. CHLORTHALIDONE. [Concomitant]
     Active Substance: CHLORTHALIDONE
  10. PRIALT [Suspect]
     Active Substance: ZICONOTIDE ACETATE
     Indication: POST LAMINECTOMY SYNDROME
     Dosage: UNK ?G, QH
     Route: 037
     Dates: start: 20151216
  11. ALENDRONATE SODIUM. [Concomitant]
     Active Substance: ALENDRONATE SODIUM
  12. MIRALAX [Concomitant]
     Active Substance: POLYETHYLENE GLYCOL 3350
  13. ATORVASTATIN [Concomitant]
     Active Substance: ATORVASTATIN
  14. DULOXETINE. [Concomitant]
     Active Substance: DULOXETINE
  15. ASPIRIN. [Concomitant]
     Active Substance: ASPIRIN
  16. PRIALT [Suspect]
     Active Substance: ZICONOTIDE ACETATE
     Dosage: 0.1 ?G, QH
     Route: 037
     Dates: start: 20160119, end: 20160203
  17. PRIALT [Suspect]
     Active Substance: ZICONOTIDE ACETATE
     Dosage: 0.183 ?G, UNK
     Route: 037
     Dates: start: 20160203
  18. CALCIUM +D [Concomitant]
     Active Substance: CALCIUM\VITAMIN D

REACTIONS (4)
  - Sciatica [Recovered/Resolved]
  - Condition aggravated [Recovered/Resolved]
  - Gait disturbance [Recovered/Resolved]
  - Drug ineffective [Recovered/Resolved]

NARRATIVE: CASE EVENT DATE: 20160210
